FAERS Safety Report 9055858 (Version 1)
Quarter: 2013Q1

REPORT INFORMATION
  Report Type: Spontaneous
  Country: US (occurrence: US)
  Receive Date: 20130206
  Receipt Date: 20130206
  Transmission Date: 20140127
  Serious: No
  Sender: FDA-Public Use
  Company Number: US-ALLERGAN-1203271US

PATIENT
  Age: 78 Year
  Sex: Female

DRUGS (3)
  1. RESTASIS [Suspect]
     Indication: DRY EYE
     Dosage: 2 GTT, BID
     Route: 047
  2. FLUOROMETHOLONE, 0.1% [Concomitant]
     Indication: EYE INFECTION
     Dosage: UNK
     Route: 047
     Dates: start: 201112
  3. ARTIFICIAL TEARS                   /00445101/ [Concomitant]
     Indication: DRY EYE
     Dosage: UNK
     Route: 047

REACTIONS (2)
  - Abnormal sensation in eye [Not Recovered/Not Resolved]
  - Scleral hyperaemia [Not Recovered/Not Resolved]
